FAERS Safety Report 9422088 (Version 1)
Quarter: 2013Q3

REPORT INFORMATION
  Report Type: Spontaneous
  Country: US (occurrence: US)
  Receive Date: 20130726
  Receipt Date: 20130726
  Transmission Date: 20140515
  Serious: Yes (Hospitalization)
  Sender: FDA-Public Use
  Company Number: US-TEVA-421102USA

PATIENT
  Age: 89 Year
  Sex: Male

DRUGS (4)
  1. ETHAMBUTOL [Suspect]
     Indication: EXTRAPULMONARY TUBERCULOSIS
     Route: 065
  2. ISONIAZID [Suspect]
     Indication: EXTRAPULMONARY TUBERCULOSIS
     Route: 065
  3. RIFAMPICIN [Suspect]
     Indication: EXTRAPULMONARY TUBERCULOSIS
     Route: 065
  4. PYRAZINAMIDE [Suspect]
     Indication: EXTRAPULMONARY TUBERCULOSIS
     Route: 065

REACTIONS (6)
  - Flank pain [Unknown]
  - Liver disorder [Unknown]
  - Back pain [Unknown]
  - Pain in extremity [Unknown]
  - Hypoaesthesia [Unknown]
  - Paraesthesia [Unknown]
